FAERS Safety Report 13351868 (Version 1)
Quarter: 2017Q1

REPORT INFORMATION
  Report Type: Spontaneous
  Country: US (occurrence: US)
  Receive Date: 20170320
  Receipt Date: 20170320
  Transmission Date: 20170429
  Serious: No
  Sender: FDA-Public Use
  Company Number: US-SA-2016SA161845

PATIENT
  Age: 60 Year
  Sex: Female
  Weight: 54 kg

DRUGS (1)
  1. NASACORT ALLERGY 24HR [Suspect]
     Active Substance: TRIAMCINOLONE ACETONIDE
     Indication: SINUSITIS
     Dosage: DOSE: TWO SPRAYS IN EACH NOSTRIL ONCE A DAY
     Route: 055
     Dates: start: 20160826, end: 20160827

REACTIONS (6)
  - Headache [Recovered/Resolved]
  - Ocular hyperaemia [Recovered/Resolved]
  - Increased upper airway secretion [Recovered/Resolved]
  - Ocular discomfort [Recovered/Resolved]
  - Drug ineffective [Unknown]
  - Epistaxis [Recovered/Resolved]
